FAERS Safety Report 7606657-6 (Version None)
Quarter: 2011Q3

REPORT INFORMATION
  Report Type: 
  Country: None (occurrence: None)
  Receive Date: 20110713
  Receipt Date: 20110706
  Transmission Date: 20111222
  Serious: Yes (Other)
  Sender: FDA-Public Use
  Company Number: BR-ROCHE-485895

PATIENT
  Sex: Male
  Weight: 73 kg

DRUGS (7)
  1. AAS INFANTIL [Concomitant]
     Indication: BLOOD CHOLESTEROL ABNORMAL
     Dosage: OTHER INDICATION: TO THIN THE BLOOD
     Dates: start: 19940101
  2. PROPRANOLOL [Concomitant]
     Dates: start: 20090401
  3. NIFEDIPINE [Concomitant]
     Dates: start: 20090401
  4. SIMVASTATIN [Concomitant]
     Indication: BLOOD CHOLESTEROL ABNORMAL
     Dates: start: 20090101
  5. BUCLIZINE HYDROCHLORIDE [Concomitant]
     Dosage: DRUG REPORTED AS BUCLINA
     Dates: start: 20100601, end: 20100101
  6. CLONAZEPAM [Suspect]
     Indication: CEREBROVASCULAR ACCIDENT
     Route: 065
  7. CLONAZEPAM [Suspect]
     Indication: CEREBROVASCULAR ACCIDENT
     Dosage: OTHER INDICATIONS: CEREBROVASCULAR ACCIDENT AND AGGRESSIVENESS
     Route: 048
     Dates: start: 19950101

REACTIONS (7)
  - TREMOR [None]
  - SOMNOLENCE [None]
  - HEADACHE [None]
  - CEREBROVASCULAR ACCIDENT [None]
  - SLEEP DISORDER [None]
  - NO THERAPEUTIC RESPONSE [None]
  - ANAEMIA [None]
